APPROVED DRUG PRODUCT: ROCURONIUM BROMIDE
Active Ingredient: ROCURONIUM BROMIDE
Strength: 50MG/5ML (10MG/ML)
Dosage Form/Route: INJECTABLE;INJECTION
Application: A078519 | Product #001 | TE Code: AP
Applicant: HOSPIRA INC
Approved: Nov 26, 2008 | RLD: No | RS: No | Type: RX